FAERS Safety Report 10613264 (Version 3)
Quarter: 2015Q1

REPORT INFORMATION
  Report Type: Spontaneous
  Country: US (occurrence: US)
  Receive Date: 20141128
  Receipt Date: 20150305
  Transmission Date: 20150720
  Serious: Yes (Hospitalization, Other)
  Sender: FDA-Public Use
  Company Number: US-AMGEN-USASP2014092186

PATIENT
  Age: 58 Year
  Sex: Female

DRUGS (3)
  1. CITRACAL + D                       /01438101/ [Concomitant]
     Dosage: UNK
  2. PROLIA [Suspect]
     Active Substance: DENOSUMAB
     Indication: OSTEOPOROSIS POSTMENOPAUSAL
     Dosage: UNK
     Route: 065
     Dates: start: 20140912
  3. FUROSEMIDE. [Concomitant]
     Active Substance: FUROSEMIDE
     Dosage: UNK UNK, QD

REACTIONS (11)
  - Staphylococcal infection [Recovered/Resolved]
  - Impaired driving ability [Unknown]
  - Malaise [Unknown]
  - Scar [Unknown]
  - Skin haemorrhage [Unknown]
  - Rash [Unknown]
  - Cellulitis [Recovered/Resolved]
  - Loss of consciousness [Unknown]
  - Pruritus [Unknown]
  - Head injury [Unknown]
  - Fall [Unknown]

NARRATIVE: CASE EVENT DATE: 20140914
